FAERS Safety Report 16797043 (Version 2)
Quarter: 2025Q2

REPORT INFORMATION
  Report Type: Spontaneous
  Country: PL (occurrence: PL)
  Receive Date: 20190911
  Receipt Date: 20250628
  Transmission Date: 20250716
  Serious: Yes (Other)
  Sender: AUROBINDO
  Company Number: PL-AUROBINDO-AUR-APL-2019-059798

PATIENT
  Age: 35 Year
  Sex: Female

DRUGS (3)
  1. IMATINIB [Suspect]
     Active Substance: IMATINIB
     Indication: Chronic myeloid leukaemia
     Dosage: 400 MILLIGRAM, ONCE A DAY, REINTRODUCTION
     Route: 065
     Dates: start: 200505
  2. ACETAMINOPHEN [Suspect]
     Active Substance: ACETAMINOPHEN
     Indication: Nasopharyngitis
     Route: 065
  3. HYDROXYUREA [Concomitant]
     Active Substance: HYDROXYUREA
     Indication: Chronic myeloid leukaemia
     Route: 065

REACTIONS (9)
  - Splenomegaly [Unknown]
  - Anaemia [Unknown]
  - Drug intolerance [Unknown]
  - Therapy non-responder [Unknown]
  - Hepatotoxicity [Unknown]
  - Blood bilirubin increased [Unknown]
  - Jaundice [Unknown]
  - Transaminases increased [Unknown]
  - Leukocytosis [Unknown]

NARRATIVE: CASE EVENT DATE: 20060201
